FAERS Safety Report 7899453-6 (Version None)
Quarter: 2011Q4

REPORT INFORMATION
  Report Type: 
  Country: None (occurrence: None)
  Receive Date: 20111107
  Receipt Date: 20110914
  Transmission Date: 20120403
  Serious: No
  Sender: FDA-Public Use
  Company Number: US-AMGEN-USASP2011047406

PATIENT
  Sex: Male

DRUGS (5)
  1. PENICILLIN VK [Concomitant]
  2. ENBREL [Suspect]
     Indication: PRODUCT USED FOR UNKNOWN INDICATION
     Dosage: 15 MG, 2 TIMES/WK
  3. METHOTREXATE [Concomitant]
  4. NAPROSYN [Concomitant]
  5. FOLIC ACID [Concomitant]

REACTIONS (1)
  - PHARYNGITIS STREPTOCOCCAL [None]
